FAERS Safety Report 20527388 (Version 1)
Quarter: 2022Q1

REPORT INFORMATION
  Report Type: Spontaneous
  Country: US (occurrence: None)
  Receive Date: 20220228
  Receipt Date: 20220228
  Transmission Date: 20220424
  Serious: No
  Sender: FDA-Public Use
  Company Number: None

PATIENT
  Age: 59 Year
  Sex: Male

DRUGS (1)
  1. ABIRATERONE ACETATE [Suspect]
     Active Substance: ABIRATERONE ACETATE
     Dosage: FREQUENCY : DAILY;?
     Route: 048
     Dates: start: 202106

REACTIONS (4)
  - Night sweats [None]
  - Nausea [None]
  - Headache [None]
  - Product substitution issue [None]

NARRATIVE: CASE EVENT DATE: 20211001
